FAERS Safety Report 19440989 (Version 3)
Quarter: 2022Q2

REPORT INFORMATION
  Report Type: Report from Study
  Country: JP (occurrence: JP)
  Receive Date: 20210621
  Receipt Date: 20220610
  Transmission Date: 20220721
  Serious: Yes (Other)
  Sender: FDA-Public Use
  Company Number: JP-ACTELION-A-CH2018-166812

PATIENT
  Age: 70 Year
  Sex: Female
  Weight: 69.7 kg

DRUGS (20)
  1. UPTRAVI [Suspect]
     Active Substance: SELEXIPAG
     Indication: Pulmonary arterial hypertension
     Dosage: 1.4 MG, (0.6MG, 0.8MG)/DAY
     Route: 048
     Dates: start: 20170517, end: 20170530
  2. UPTRAVI [Suspect]
     Active Substance: SELEXIPAG
     Dosage: 0.4 MG
     Route: 048
     Dates: start: 20170308, end: 20170321
  3. UPTRAVI [Suspect]
     Active Substance: SELEXIPAG
     Dosage: 0.6 MG, (0.2MG, 0.4MG)/DAY
     Route: 048
     Dates: start: 20170322, end: 20170418
  4. UPTRAVI [Suspect]
     Active Substance: SELEXIPAG
     Dosage: 1.0 MG
     Route: 048
     Dates: start: 20170419, end: 20170501
  5. UPTRAVI [Suspect]
     Active Substance: SELEXIPAG
     Dosage: 1.2 MG
     Route: 048
     Dates: start: 20170502, end: 20170516
  6. UPTRAVI [Suspect]
     Active Substance: SELEXIPAG
     Dosage: 1.6 MG
     Route: 048
     Dates: start: 20170531, end: 20170613
  7. UPTRAVI [Suspect]
     Active Substance: SELEXIPAG
     Dosage: 1.8 MG
     Route: 048
     Dates: start: 20170614, end: 20170711
  8. UPTRAVI [Suspect]
     Active Substance: SELEXIPAG
     Dosage: 2.0 MG
     Route: 048
     Dates: start: 20170712, end: 20170808
  9. UPTRAVI [Suspect]
     Active Substance: SELEXIPAG
     Dosage: 2.4 MG
     Route: 048
     Dates: start: 20170809, end: 20210324
  10. UPTRAVI [Suspect]
     Active Substance: SELEXIPAG
     Route: 048
  11. OPSUMIT [Concomitant]
     Active Substance: MACITENTAN
     Indication: Pulmonary arterial hypertension
     Dosage: 10 MG, QD
     Dates: start: 20170114
  12. REVATIO [Concomitant]
     Active Substance: SILDENAFIL CITRATE
     Indication: Pulmonary arterial hypertension
     Dosage: 60 MG, QD
     Dates: start: 20170112, end: 20180610
  13. AZOSEMIDE [Concomitant]
     Active Substance: AZOSEMIDE
     Indication: Cardiac failure
     Dosage: 7.5 MG, QD
     Dates: start: 20170304
  14. AZOSEMIDE [Concomitant]
     Active Substance: AZOSEMIDE
     Dates: start: 20170304, end: 20190728
  15. AZOSEMIDE [Concomitant]
     Active Substance: AZOSEMIDE
     Dates: start: 20190729, end: 20191222
  16. AZOSEMIDE [Concomitant]
     Active Substance: AZOSEMIDE
     Dates: start: 20191223
  17. SPIRONOLACTONE [Concomitant]
     Active Substance: SPIRONOLACTONE
     Indication: Cardiac failure
     Dosage: 25 MG, QD
     Dates: start: 20170304
  18. REBAMIPIDE [Concomitant]
     Active Substance: REBAMIPIDE
     Indication: Prophylaxis
     Dosage: 300 MG, QD
     Dates: start: 20170116
  19. NEXIUM [Concomitant]
     Active Substance: ESOMEPRAZOLE MAGNESIUM
     Indication: Prophylaxis
     Dosage: 20 MG, QD
     Dates: start: 20170117
  20. ADCIRCA [Concomitant]
     Active Substance: TADALAFIL
     Indication: Pulmonary arterial hypertension
     Dates: start: 20180611

REACTIONS (6)
  - Pulmonary congestion [Recovering/Resolving]
  - Pain in jaw [Recovering/Resolving]
  - Headache [Recovering/Resolving]
  - Diarrhoea [Recovering/Resolving]
  - Platelet count decreased [Not Recovered/Not Resolved]
  - Drug titration error [Unknown]

NARRATIVE: CASE EVENT DATE: 20170322
